FAERS Safety Report 11835532 (Version 1)
Quarter: 2015Q4

REPORT INFORMATION
  Report Type: Spontaneous
  Country: US (occurrence: None)
  Receive Date: 20151214
  Receipt Date: 20151214
  Transmission Date: 20160305
  Serious: Yes (Hospitalization, Disabling)
  Sender: FDA-Public Use
  Company Number: None

PATIENT
  Age: 55 Year
  Sex: Female
  Weight: 73.48 kg

DRUGS (5)
  1. PREDNISONE. [Concomitant]
     Active Substance: PREDNISONE
  2. MULTIVITAMINS [Concomitant]
     Active Substance: VITAMINS
  3. HUMIRA [Suspect]
     Active Substance: ADALIMUMAB
     Indication: RHEUMATOID ARTHRITIS
     Dosage: INTO THE MUSCLE
  4. METHOTREXATE [Concomitant]
     Active Substance: METHOTREXATE
  5. THYROXINE [Concomitant]
     Active Substance: LEVOTHYROXINE

REACTIONS (3)
  - Acute febrile neutrophilic dermatosis [None]
  - Systemic lupus erythematosus [None]
  - Cardiomegaly [None]

NARRATIVE: CASE EVENT DATE: 20120405
